FAERS Safety Report 7191231-9 (Version None)
Quarter: 2010Q4

REPORT INFORMATION
  Report Type: 
  Country: None (occurrence: None)
  Receive Date: 20101223
  Receipt Date: 20101213
  Transmission Date: 20110411
  Serious: Yes (Other)
  Sender: FDA-Public Use
  Company Number: DE-ROCHE-749285

PATIENT
  Sex: Female

DRUGS (6)
  1. ROACTEMRA [Suspect]
     Indication: RHEUMATOID ARTHRITIS
     Dosage: APPLICATIONS ON 12 JAN, 9 FEB, 9 MAR 2010
     Route: 042
     Dates: start: 20100112, end: 20100309
  2. ROACTEMRA [Suspect]
     Dosage: APPLICATIONS ON 18 NOV AND 9 DEC 2010
     Route: 042
     Dates: start: 20101118
  3. STEROID NOS [Suspect]
     Indication: RHEUMATOID ARTHRITIS
     Dosage: UP TO 20 MG DAILY
     Route: 065
     Dates: start: 20070401, end: 20100101
  4. STEROID NOS [Suspect]
     Route: 065
     Dates: start: 20100101, end: 20100701
  5. STEROID NOS [Suspect]
     Route: 065
     Dates: start: 20100701
  6. DICLOFENAC [Concomitant]
     Dates: start: 20051101

REACTIONS (1)
  - ABORTION SPONTANEOUS [None]
